FAERS Safety Report 14016275 (Version 1)
Quarter: 2017Q3

REPORT INFORMATION
  Report Type: Spontaneous
  Country: US (occurrence: US)
  Receive Date: 20170927
  Receipt Date: 20170927
  Transmission Date: 20171128
  Serious: Yes (Other)
  Sender: FDA-Public Use
  Company Number: US-SA-2016SA229382

PATIENT

DRUGS (1)
  1. LEMTRADA [Suspect]
     Active Substance: ALEMTUZUMAB
     Indication: MULTIPLE SCLEROSIS
     Route: 065
     Dates: start: 201511

REACTIONS (6)
  - Multiple sclerosis relapse [Not Recovered/Not Resolved]
  - Gait disturbance [Not Recovered/Not Resolved]
  - Peroneal nerve palsy [Recovered/Resolved]
  - Fatigue [Recovered/Resolved]
  - Optic neuritis [Not Recovered/Not Resolved]
  - Nightmare [Unknown]

NARRATIVE: CASE EVENT DATE: 201605
